FAERS Safety Report 9383335 (Version 2)
Quarter: 2013Q3

REPORT INFORMATION
  Report Type: Spontaneous
  Country: US (occurrence: US)
  Receive Date: 20130704
  Receipt Date: 20130809
  Transmission Date: 20140515
  Serious: Yes (Other)
  Sender: FDA-Public Use
  Company Number: US-009507513-1307USA000064

PATIENT
  Sex: Male

DRUGS (3)
  1. JANUVIA [Suspect]
     Indication: DIABETES MELLITUS
     Dosage: 50 MG, UNK
  2. JANUVIA [Suspect]
     Dosage: 25 MG, UNK
  3. AMLODIPINE [Concomitant]

REACTIONS (1)
  - Cardiac failure [Unknown]
